FAERS Safety Report 7543093-5 (Version None)
Quarter: 2011Q2

REPORT INFORMATION
  Report Type: 
  Country: None (occurrence: None)
  Receive Date: 20110613
  Receipt Date: 20110607
  Transmission Date: 20111010
  Serious: No
  Sender: FDA-Public Use
  Company Number: US-PFIZER INC-2011124579

PATIENT
  Sex: Female
  Weight: 63.5 kg

DRUGS (4)
  1. PREMARIN [Suspect]
     Indication: VAGINAL INFLAMMATION
  2. PRAVASTATIN [Concomitant]
     Indication: BLOOD CHOLESTEROL ABNORMAL
     Dosage: 60 MG, 1X/DAY
  3. DYAZIDE [Concomitant]
     Indication: BLOOD PRESSURE ABNORMAL
     Dosage: 25/37.5 MG,DAILY
     Route: 048
  4. PREMARIN [Suspect]
     Indication: OFF LABEL USE
     Dosage: UNK
     Route: 067
     Dates: start: 20110401, end: 20110401

REACTIONS (3)
  - VISION BLURRED [None]
  - DIZZINESS [None]
  - NAUSEA [None]
